FAERS Safety Report 5670391-2 (Version None)
Quarter: 2008Q1

REPORT INFORMATION
  Report Type: 
  Country: None (occurrence: None)
  Receive Date: 20080318
  Receipt Date: 20080304
  Transmission Date: 20080703
  Serious: Yes (Life-Threatening, Other)
  Sender: FDA-Public Use
  Company Number: US-BAYER-200815589NA

PATIENT
  Sex: Male

DRUGS (2)
  1. TRASYLOL [Suspect]
     Indication: SPINAL FUSION SURGERY
     Dates: start: 20040501
  2. TRASYLOL [Suspect]
     Dates: start: 20050501

REACTIONS (12)
  - ADVERSE EVENT [None]
  - DYSPNOEA [None]
  - INFLUENZA [None]
  - MEMORY IMPAIRMENT [None]
  - MULTI-ORGAN FAILURE [None]
  - MUMPS [None]
  - MYOCARDIAL INFARCTION [None]
  - PROCEDURAL PAIN [None]
  - PYREXIA [None]
  - SEASONAL ALLERGY [None]
  - SEPSIS [None]
  - SEPTIC SHOCK [None]
